FAERS Safety Report 6360760-X (Version None)
Quarter: 2009Q3

REPORT INFORMATION
  Report Type: 
  Country: None (occurrence: None)
  Receive Date: 20090918
  Receipt Date: 20090914
  Transmission Date: 20100115
  Serious: Yes (Hospitalization, Other)
  Sender: FDA-Public Use
  Company Number: GT-JNJFOC-20090902020

PATIENT
  Age: 37 Year
  Sex: Male
  Weight: 95.26 kg

DRUGS (2)
  1. ELEQUINE [Suspect]
     Indication: SINUSITIS
     Route: 048
  2. ACETAMINOPHEN [Concomitant]
     Indication: SINUSITIS
     Route: 048

REACTIONS (1)
  - VENTRICULAR EXTRASYSTOLES [None]
